FAERS Safety Report 7802168-3 (Version None)
Quarter: 2011Q4

REPORT INFORMATION
  Report Type: 
  Country: None (occurrence: None)
  Receive Date: 20111007
  Receipt Date: 20111003
  Transmission Date: 20120403
  Serious: Yes (Death)
  Sender: FDA-Public Use
  Company Number: CH-CEPHALON-2011005269

PATIENT
  Sex: Female

DRUGS (6)
  1. BENDAMUSTINE HCL [Suspect]
     Indication: LYMPHOMA
     Route: 042
     Dates: start: 20110907, end: 20110908
  2. LENALIDOMIDE [Suspect]
     Indication: LYMPHOMA
     Route: 048
     Dates: start: 20110907, end: 20110927
  3. PANTOZAL [Concomitant]
     Dates: start: 20110907
  4. RITUXIMAB [Suspect]
     Indication: LYMPHOMA
     Route: 042
     Dates: start: 20110907, end: 20110907
  5. FERRUM HAUSMANN [Concomitant]
  6. ACETAMINOPHEN [Concomitant]

REACTIONS (1)
  - DEATH [None]
